FAERS Safety Report 25149185 (Version 1)
Quarter: 2025Q2

REPORT INFORMATION
  Report Type: Spontaneous
  Country: FR (occurrence: FR)
  Receive Date: 20250402
  Receipt Date: 20250402
  Transmission Date: 20250716
  Serious: Yes (Hospitalization, Other)
  Sender: CHEPLAPHARM
  Company Number: None

PATIENT
  Age: 40 Year
  Sex: Male
  Weight: 80 kg

DRUGS (4)
  1. OLANZAPINE [Suspect]
     Active Substance: OLANZAPINE
     Route: 048
     Dates: start: 20241002, end: 20241002
  2. MIRTAZAPINE [Suspect]
     Active Substance: MIRTAZAPINE
     Route: 048
     Dates: start: 20241002, end: 20241002
  3. OXAZEPAM [Suspect]
     Active Substance: OXAZEPAM
     Route: 048
     Dates: start: 20241002, end: 20241002
  4. CYAMEMAZINE [Suspect]
     Active Substance: CYAMEMAZINE
     Route: 048
     Dates: start: 20241002, end: 20241002

REACTIONS (6)
  - Coma [Unknown]
  - Poisoning deliberate [Unknown]
  - Suicide attempt [Unknown]
  - Suicidal ideation [Unknown]
  - Agitation [Unknown]
  - Hypotonia [Unknown]

NARRATIVE: CASE EVENT DATE: 20241002
